FAERS Safety Report 25906649 (Version 5)
Quarter: 2025Q4

REPORT INFORMATION
  Report Type: Spontaneous
  Country: AU (occurrence: AU)
  Receive Date: 20251010
  Receipt Date: 20251210
  Transmission Date: 20260117
  Serious: Yes (Other)
  Sender: PFIZER
  Company Number: AU-PFIZER INC-202500198505

PATIENT
  Age: 57 Year
  Sex: Female

DRUGS (1)
  1. CLINDAMYCIN PHOSPHATE [Suspect]
     Active Substance: CLINDAMYCIN PHOSPHATE
     Indication: Bacterial vaginosis
     Dosage: UNK

REACTIONS (3)
  - Device physical property issue [Unknown]
  - Application site pain [Unknown]
  - Application site discomfort [Unknown]
